FAERS Safety Report 9537839 (Version 1)
Quarter: 2013Q3

REPORT INFORMATION
  Report Type: Spontaneous
  Country: PT (occurrence: PT)
  Receive Date: 20130919
  Receipt Date: 20130919
  Transmission Date: 20140515
  Serious: Yes (Death, Hospitalization)
  Sender: FDA-Public Use
  Company Number: PT-CELGENEUS-130-50794-13033183

PATIENT
  Age: 58 Year
  Sex: Female

DRUGS (2)
  1. VIDAZA [Suspect]
     Indication: ACUTE MYELOID LEUKAEMIA
     Route: 065
     Dates: start: 201006
  2. VIDAZA [Suspect]
     Route: 065
     Dates: start: 20110110, end: 20110118

REACTIONS (2)
  - Acute myeloid leukaemia [Fatal]
  - Lower respiratory tract infection [Unknown]
